FAERS Safety Report 8399728-0 (Version None)
Quarter: 2012Q2

REPORT INFORMATION
  Report Type: 
  Country: None (occurrence: None)
  Receive Date: 20120525
  Receipt Date: 20120519
  Transmission Date: 20120825
  Serious: Yes (Other)
  Sender: FDA-Public Use
  Company Number: TPA2011A08600

PATIENT
  Age: 52 Year
  Sex: Male
  Weight: 130.6359 kg

DRUGS (1)
  1. ACTOS [Suspect]
     Indication: HYPERGLYCAEMIA
     Dosage: 30 MG, 1 IN 1 D, PER ORAL
     Route: 048
     Dates: start: 20030310, end: 20030709

REACTIONS (3)
  - CYSTITIS [None]
  - BLADDER TRANSITIONAL CELL CARCINOMA [None]
  - RENAL FAILURE CHRONIC [None]
